FAERS Safety Report 5595562-5 (Version None)
Quarter: 2008Q1

REPORT INFORMATION
  Report Type: 
  Country: None (occurrence: None)
  Receive Date: 20080116
  Receipt Date: 20080116
  Transmission Date: 20080703
  Serious: Yes (Hospitalization)
  Sender: FDA-Public Use
  Company Number: None

PATIENT

DRUGS (2)
  1. AVELOX [Suspect]
  2. ASPIRIN [Suspect]

REACTIONS (6)
  - CARDIO-RESPIRATORY ARREST [None]
  - DYSPNOEA [None]
  - EYE SWELLING [None]
  - PRURITUS GENERALISED [None]
  - SWELLING [None]
  - SYNCOPE [None]
